FAERS Safety Report 8161191 (Version 10)
Quarter: 2014Q2

REPORT INFORMATION
  Report Type: Report from Study
  Country: DE (occurrence: DE)
  Receive Date: 20110929
  Receipt Date: 20140424
  Transmission Date: 20141212
  Serious: Yes (Death, Life-Threatening, Hospitalization, Disabling)
  Sender: FDA-Public Use
  Company Number: DE-CELGENEUS-062-21880-11092969

PATIENT
  Age: 59 Year
  Sex: Male
  Weight: 71 kg

DRUGS (17)
  1. REVLIMID [Suspect]
     Indication: PLASMA CELL MYELOMA
     Dosage: 25 MILLIGRAM
     Route: 048
     Dates: start: 20110701, end: 20110721
  2. REVLIMID [Suspect]
     Dosage: 25 MILLIGRAM
     Route: 048
     Dates: start: 20110729, end: 20110811
  3. REVLIMID [Suspect]
     Dosage: 25 MILLIGRAM
     Route: 048
     Dates: start: 20110826, end: 20110908
  4. DEXAMETHASONE [Suspect]
     Indication: PLASMA CELL MYELOMA
     Dosage: 40 MILLIGRAM
     Route: 065
     Dates: start: 20110701, end: 20110722
  5. DEXAMETHASONE [Suspect]
     Route: 065
     Dates: start: 20110729, end: 20110805
  6. DEXAMETHASONE [Suspect]
     Dosage: 40 MILLIGRAM
     Route: 065
     Dates: start: 20110923, end: 20110926
  7. AVALOX [Concomitant]
     Indication: PNEUMONIA
     Dosage: 400 MILLIGRAM
     Route: 048
     Dates: start: 20110812, end: 20110826
  8. AVALOX [Concomitant]
     Indication: PNEUMONIA
     Dosage: 400 MILLIGRAM
     Route: 048
     Dates: start: 20110909, end: 20110909
  9. AVALOX [Concomitant]
     Dosage: 400 MILLIGRAM
     Route: 048
     Dates: start: 20110910, end: 20111001
  10. PANTOZOL [Concomitant]
     Indication: DRUG THERAPY
     Dosage: 40 MILLIGRAM
     Route: 048
     Dates: start: 20110701, end: 20110921
  11. VALTREX [Concomitant]
     Indication: ANTIVIRAL PROPHYLAXIS
     Dosage: 1000 MILLIGRAM
     Route: 048
     Dates: start: 20110701, end: 20111005
  12. VELCADE [Concomitant]
     Indication: DISEASE PROGRESSION
     Dosage: 2.28 MILLIGRAM
     Route: 058
     Dates: start: 20110923, end: 20110923
  13. VELCADE [Concomitant]
     Dosage: 2.26 MILLIGRAM
     Route: 058
     Dates: start: 20110926, end: 20110926
  14. VELCADE [Concomitant]
     Dosage: 2.25 MILLIGRAM
     Route: 058
     Dates: start: 20110930, end: 20110930
  15. VELCADE [Concomitant]
     Dosage: 2.36 MILLIGRAM
     Route: 058
     Dates: start: 20111003, end: 20111003
  16. ACETYLSALICYLIC ACID [Concomitant]
     Indication: ANTICOAGULANT THERAPY
     Dosage: 100 MILLIGRAM
     Route: 048
     Dates: start: 20110701, end: 20110922
  17. ACETYLSALICYLIC ACID [Concomitant]
     Indication: ANTIPLATELET THERAPY

REACTIONS (4)
  - Acute myocardial infarction [Not Recovered/Not Resolved]
  - Pneumonia [Recovered/Resolved]
  - Cerebral haemorrhage [Fatal]
  - Plasma cell myeloma [Fatal]
